FAERS Safety Report 9187640 (Version 1)
Quarter: 2013Q1

REPORT INFORMATION
  Report Type: Spontaneous
  Country: US (occurrence: US)
  Receive Date: 20130325
  Receipt Date: 20130325
  Transmission Date: 20140127
  Serious: Yes (Hospitalization, Other)
  Sender: FDA-Public Use
  Company Number: US-PFIZER INC-2013093188

PATIENT
  Sex: Male

DRUGS (2)
  1. CELEBREX [Suspect]
     Indication: BACK PAIN
     Dosage: 200 MG, 1X/DAY
  2. CELEBREX [Suspect]
     Dosage: 600 MG, 1X/DAY
     Dates: start: 200501

REACTIONS (2)
  - Myocardial infarction [Unknown]
  - Angina pectoris [Unknown]
